FAERS Safety Report 8312878-X (Version None)
Quarter: 2012Q2

REPORT INFORMATION
  Report Type: 
  Country: None (occurrence: None)
  Receive Date: 20120426
  Receipt Date: 20120423
  Transmission Date: 20120825
  Serious: Yes (Other)
  Sender: FDA-Public Use
  Company Number: US-PFIZER INC-2012101005

PATIENT
  Sex: Female
  Weight: 81.179 kg

DRUGS (3)
  1. AMLODIPINE BESILATE [Suspect]
     Dosage: 10 MG, DAILY
     Route: 048
     Dates: start: 20100101, end: 20100101
  2. AMLODIPINE BESILATE [Suspect]
     Indication: HYPERTENSION
     Dosage: 10 MG, DAILY
     Route: 048
     Dates: start: 20100101
  3. XANAX [Concomitant]
     Dosage: 0.5 MG, DAILY

REACTIONS (4)
  - HYPERTENSION [None]
  - FEELING ABNORMAL [None]
  - SENSORY DISTURBANCE [None]
  - PALPITATIONS [None]
